FAERS Safety Report 6445596-3 (Version None)
Quarter: 2009Q4

REPORT INFORMATION
  Report Type: 
  Country: None (occurrence: None)
  Receive Date: 20091118
  Receipt Date: 20091118
  Transmission Date: 20100525
  Serious: Yes (Death, Hospitalization)
  Sender: FDA-Public Use
  Company Number: None

PATIENT
  Sex: Female
  Weight: 57 kg

DRUGS (15)
  1. FLUOROURACIL [Suspect]
     Dosage: 5130 MG
     Dates: end: 20090929
  2. BEVACIZUMAB (RHUMAB VEGF) [Suspect]
     Dosage: 355 MG
     Dates: end: 20090929
  3. LEUCOVORIN CALCIUM [Suspect]
     Dosage: 730 MG
     Dates: end: 20090929
  4. ELOXATIN [Suspect]
     Dosage: 120 MG
     Dates: end: 20090929
  5. ALLOPURINOL [Concomitant]
  6. DEXAMETHASONE [Concomitant]
  7. IRON SULFATETHIAMIN COMPOUND TAB [Concomitant]
  8. LASIX [Concomitant]
  9. MEGACE [Concomitant]
  10. OXYCONTIN [Concomitant]
  11. PERCOCET [Concomitant]
  12. PROCHLORPERAZINE [Concomitant]
  13. RANITIDINE [Concomitant]
  14. ROBAXIN [Concomitant]
  15. VERAMYST [Concomitant]

REACTIONS (2)
  - EJECTION FRACTION DECREASED [None]
  - LEFT VENTRICULAR DYSFUNCTION [None]
